FAERS Safety Report 6857254-1 (Version None)
Quarter: 2010Q3

REPORT INFORMATION
  Report Type: 
  Country: None (occurrence: None)
  Receive Date: 20100719
  Receipt Date: 20100708
  Transmission Date: 20110219
  Serious: Yes (Other)
  Sender: FDA-Public Use
  Company Number: US-JNJFOC-20100704753

PATIENT
  Sex: Female
  Weight: 68.04 kg

DRUGS (3)
  1. DOXIL [Suspect]
     Indication: BREAST CANCER
     Dosage: 6.1
     Route: 042
  2. IBUPROFEN [Concomitant]
     Indication: PAIN
     Route: 065
  3. IBUPROFEN [Concomitant]
     Indication: PYREXIA
     Route: 065

REACTIONS (6)
  - BLOOD COUNT ABNORMAL [None]
  - CHILLS [None]
  - HYPOKINESIA [None]
  - INAPPROPRIATE SCHEDULE OF DRUG ADMINISTRATION [None]
  - OFF LABEL USE [None]
  - PYREXIA [None]
